FAERS Safety Report 16449333 (Version 1)
Quarter: 2019Q2

REPORT INFORMATION
  Report Type: Spontaneous
  Country: US (occurrence: US)
  Receive Date: 20190619
  Receipt Date: 20190619
  Transmission Date: 20190711
  Serious: Yes (Death, Other)
  Sender: FDA-Public Use
  Company Number: US-AMGEN-USASP2019094400

PATIENT
  Age: 23 Year
  Sex: Male

DRUGS (3)
  1. INOTUZUMAB [Concomitant]
     Active Substance: INOTUZUMAB OZOGAMICIN
     Dosage: UNK UNK, ONE TIME DOSE
  2. BLINATUMOMAB [Suspect]
     Active Substance: BLINATUMOMAB
     Indication: ACUTE LYMPHOCYTIC LEUKAEMIA
     Dosage: UNK
     Route: 065
  3. VINCRISTINE [Concomitant]
     Active Substance: VINCRISTINE
     Indication: ACUTE LYMPHOCYTIC LEUKAEMIA

REACTIONS (7)
  - Cardiomyopathy [Unknown]
  - Fusarium infection [Recovering/Resolving]
  - Treatment failure [Unknown]
  - Klebsiella sepsis [Unknown]
  - Acute lymphocytic leukaemia [Fatal]
  - Multiple organ dysfunction syndrome [Unknown]
  - Transaminases increased [Unknown]
